FAERS Safety Report 6739305-8 (Version None)
Quarter: 2010Q2

REPORT INFORMATION
  Report Type: 
  Country: None (occurrence: None)
  Receive Date: 20100521
  Receipt Date: 20100506
  Transmission Date: 20101027
  Serious: Yes (Life-Threatening)
  Sender: FDA-Public Use
  Company Number: CTI_01190_2010

PATIENT
  Sex: Male

DRUGS (1)
  1. SPECTRACEF [Suspect]
     Indication: BRONCHITIS
     Dosage: 1 DF BID ORAL
     Route: 048
     Dates: start: 20100421, end: 20100422

REACTIONS (5)
  - CYANOSIS [None]
  - DRUG HYPERSENSITIVITY [None]
  - DYSPNOEA [None]
  - EYELID DISORDER [None]
  - OEDEMA [None]
